FAERS Safety Report 23049673 (Version 9)
Quarter: 2025Q2

REPORT INFORMATION
  Report Type: Report from Study
  Country: CO (occurrence: CO)
  Receive Date: 20231010
  Receipt Date: 20250513
  Transmission Date: 20250717
  Serious: Yes (Other)
  Sender: TAKEDA
  Company Number: CO-TAKEDA-2022TUS078527

PATIENT
  Age: 63 Year
  Sex: Male
  Weight: 77 kg

DRUGS (2)
  1. ICATIBANT [Suspect]
     Active Substance: ICATIBANT ACETATE
     Indication: Hereditary angioedema
  2. ICATIBANT [Suspect]
     Active Substance: ICATIBANT ACETATE

REACTIONS (9)
  - Actinic keratosis [Recovering/Resolving]
  - Melanocytic naevus [Recovering/Resolving]
  - Food allergy [Unknown]
  - Blister [Recovering/Resolving]
  - Weight increased [Unknown]
  - Discouragement [Recovered/Resolved]
  - Fatigue [Recovered/Resolved]
  - Rash macular [Unknown]
  - Product prescribing error [Unknown]

NARRATIVE: CASE EVENT DATE: 20230327
